FAERS Safety Report 4396496-4 (Version None)
Quarter: 2004Q3

REPORT INFORMATION
  Report Type: 
  Country: None (occurrence: None)
  Receive Date: 20040713
  Receipt Date: 20040617
  Transmission Date: 20050211
  Serious: Yes (Hospitalization)
  Sender: FDA-Public Use
  Company Number: DE-MERCK-0406DEU00113

PATIENT
  Age: 53 Year
  Sex: Male
  Weight: 80 kg

DRUGS (4)
  1. ASPIRIN [Concomitant]
     Route: 065
  2. ENALAPRIL MALEATE [Concomitant]
     Route: 048
  3. ZETIA [Suspect]
     Indication: TYPE IIA HYPERLIPIDAEMIA
     Route: 048
     Dates: start: 20040401, end: 20040501
  4. METOPROLOL SUCCINATE [Concomitant]
     Route: 048

REACTIONS (2)
  - AREFLEXIA [None]
  - PARAESTHESIA [None]
